FAERS Safety Report 15705658 (Version 1)
Quarter: 2018Q4

REPORT INFORMATION
  Report Type: Spontaneous
  Country: TR (occurrence: TR)
  Receive Date: 20181210
  Receipt Date: 20181210
  Transmission Date: 20190205
  Serious: Yes (Hospitalization, Other)
  Sender: FDA-Public Use
  Company Number: TR-JNJFOC-20181201015

PATIENT
  Age: 22 Year
  Sex: Male
  Weight: 95 kg

DRUGS (4)
  1. DULOXETINE HYDROCHLORIDE. [Concomitant]
     Active Substance: DULOXETINE HYDROCHLORIDE
     Indication: PRODUCT USED FOR UNKNOWN INDICATION
  2. IFOSFAMIDE. [Concomitant]
     Active Substance: IFOSFAMIDE
     Route: 065
  3. CISPLATIN. [Concomitant]
     Active Substance: CISPLATIN
     Route: 065
  4. CAELYX [Suspect]
     Active Substance: DOXORUBICIN HYDROCHLORIDE
     Indication: OSTEOSARCOMA
     Route: 042
     Dates: start: 20181130, end: 20181130

REACTIONS (7)
  - Respiratory distress [Recovered/Resolved]
  - Off label use [Unknown]
  - Asphyxia [Recovered/Resolved]
  - Respiratory arrest [Recovered/Resolved]
  - Infusion related reaction [Recovered/Resolved]
  - Product use in unapproved indication [Unknown]
  - Anaphylactic reaction [Recovered/Resolved]

NARRATIVE: CASE EVENT DATE: 20181130
